FAERS Safety Report 16901337 (Version 1)
Quarter: 2019Q4

REPORT INFORMATION
  Report Type: Spontaneous
  Country: CN (occurrence: CN)
  Receive Date: 20191009
  Receipt Date: 20191009
  Transmission Date: 20200122
  Serious: Yes (Hospitalization)
  Sender: FDA-Public Use
  Company Number: CN-BAXTER-2019BAX019675

PATIENT
  Age: 47 Year
  Sex: Female
  Weight: 65 kg

DRUGS (4)
  1. STERILE WATER FOR INJECTION [Suspect]
     Active Substance: WATER
     Indication: BREAST CANCER
     Dosage: AIDASHENG OF 120 MG + WATER FOR INJECTION 100 ML
     Route: 041
     Dates: start: 20190712, end: 20190712
  2. ENDOXAN [Suspect]
     Active Substance: CYCLOPHOSPHAMIDE
     Indication: BREAST CANCER
     Dosage: ENDOXAN 1 G + 0.9 % SODIUM CHLORIDE [NS] OF 500 ML
     Route: 041
     Dates: start: 20190712, end: 20190712
  3. 0.9% SODIUM CHLORIDE INJECTION [Suspect]
     Active Substance: SODIUM CHLORIDE
     Indication: BREAST CANCER
     Dosage: ENDOXAN 1 G + 0.9 % SODIUM CHLORIDE [NS] OF 500 ML
     Route: 041
     Dates: start: 20190712, end: 20190712
  4. AIDASHENG [Suspect]
     Active Substance: EPIRUBICIN HYDROCHLORIDE
     Indication: BREAST CANCER
     Dosage: AIDASHENG OF 120 MG + WATER FOR INJECTION 100 ML
     Route: 041
     Dates: start: 20190912, end: 20190912

REACTIONS (1)
  - Bone marrow failure [Recovered/Resolved]

NARRATIVE: CASE EVENT DATE: 20190724
